FAERS Safety Report 8447246-3 (Version None)
Quarter: 2012Q2

REPORT INFORMATION
  Report Type: 
  Country: None (occurrence: None)
  Receive Date: 20120619
  Receipt Date: 20120613
  Transmission Date: 20120825
  Serious: No
  Sender: FDA-Public Use
  Company Number: US-PFIZER INC-2012142678

PATIENT
  Sex: Female
  Weight: 61.2 kg

DRUGS (4)
  1. AROMASIN [Suspect]
     Indication: OFF LABEL USE
     Dosage: 25 MG, 1X/DAY
     Route: 048
     Dates: start: 20111001
  2. AROMASIN [Suspect]
     Indication: BONE NEOPLASM MALIGNANT
  3. XGEVA [Concomitant]
     Indication: BONE DENSITY ABNORMAL
     Dosage: UNK
  4. AROMASIN [Suspect]
     Indication: BLOOD OESTROGEN INCREASED

REACTIONS (6)
  - PARAESTHESIA [None]
  - JOINT STIFFNESS [None]
  - NAUSEA [None]
  - FATIGUE [None]
  - PAIN [None]
  - MUSCULOSKELETAL STIFFNESS [None]
